FAERS Safety Report 4297995-6 (Version None)
Quarter: 2004Q1

REPORT INFORMATION
  Report Type: 
  Country: None (occurrence: None)
  Receive Date: 20040218
  Receipt Date: 20011002
  Transmission Date: 20041129
  Serious: Yes (Other)
  Sender: FDA-Public Use
  Company Number: US-BRISTOL-MYERS SQUIBB COMPANY-11030947

PATIENT
  Age: 41 Year
  Sex: Female

DRUGS (12)
  1. STADOL [Suspect]
     Route: 045
  2. CARISOPRODOL [Concomitant]
  3. PROZAC [Concomitant]
  4. ATIVAN [Concomitant]
  5. LORTAB [Concomitant]
  6. TYLOX [Concomitant]
  7. FIORICET [Concomitant]
  8. IMITREX [Concomitant]
  9. ACETAMINOPHEN W/ CODEINE [Concomitant]
  10. TORADOL [Concomitant]
  11. SKELAXIN [Concomitant]
  12. AMBIEN [Concomitant]

REACTIONS (1)
  - DEPENDENCE [None]
